FAERS Safety Report 13898040 (Version 2)
Quarter: 2017Q4

REPORT INFORMATION
  Report Type: Report from Study
  Country: DE (occurrence: DE)
  Receive Date: 20170823
  Receipt Date: 20171003
  Transmission Date: 20180320
  Serious: Yes (Death)
  Sender: FDA-Public Use
  Company Number: DE-CELGENEUS-DEU-20170803888

PATIENT
  Age: 60 Year
  Sex: Female

DRUGS (3)
  1. TAZOBAC [Concomitant]
     Active Substance: PIPERACILLIN SODIUM\TAZOBACTAM SODIUM
     Indication: PRODUCT USED FOR UNKNOWN INDICATION
     Route: 065
     Dates: start: 20170313, end: 20170322
  2. GEMCITABINE [Suspect]
     Active Substance: GEMCITABINE\GEMCITABINE HYDROCHLORIDE
     Indication: PANCREATIC CARCINOMA
     Route: 065
     Dates: start: 20170309, end: 20170323
  3. ABRAXANE [Suspect]
     Active Substance: PACLITAXEL
     Indication: PANCREATIC CARCINOMA
     Route: 041
     Dates: start: 20170309, end: 20170323

REACTIONS (1)
  - Death [Fatal]

NARRATIVE: CASE EVENT DATE: 20170418
